FAERS Safety Report 6276486-7 (Version None)
Quarter: 2009Q3

REPORT INFORMATION
  Report Type: 
  Country: None (occurrence: None)
  Receive Date: 20090722
  Receipt Date: 20090713
  Transmission Date: 20100115
  Serious: Yes (Hospitalization, Other)
  Sender: FDA-Public Use
  Company Number: US-ELI_LILLY_AND_COMPANY-US200905002983

PATIENT
  Age: 82 Year
  Sex: Female
  Weight: 40.363 kg

DRUGS (10)
  1. FORTEO [Suspect]
     Indication: OSTEOPOROSIS
     Dosage: 20 UG, UNK
     Route: 058
     Dates: start: 20080701
  2. NORCO [Concomitant]
  3. TYLENOL                                 /SCH/ [Concomitant]
  4. XALATAN [Concomitant]
  5. ASPIRIN [Concomitant]
  6. ENOXAPARIN SODIUM [Concomitant]
  7. DOCUSATE [Concomitant]
  8. SENNA [Concomitant]
  9. DULCOLAX [Concomitant]
  10. IBUPROFEN [Concomitant]

REACTIONS (3)
  - FALL [None]
  - FEMUR FRACTURE [None]
  - HAEMATOMA [None]
